FAERS Safety Report 23466063 (Version 1)
Quarter: 2024Q1

REPORT INFORMATION
  Report Type: Spontaneous
  Country: CN (occurrence: CN)
  Receive Date: 20240201
  Receipt Date: 20240201
  Transmission Date: 20240409
  Serious: Yes (Hospitalization, Other)
  Sender: FDA-Public Use
  Company Number: CN-HUTCHMED LIMITED-HMP2023CN00962

PATIENT
  Age: 44 Year
  Sex: Female
  Weight: 68 kg

DRUGS (8)
  1. FRUQUINTINIB [Suspect]
     Active Substance: FRUQUINTINIB
     Indication: Rectal cancer stage IV
     Dosage: 4 MILLIGRAM, QD
     Route: 048
     Dates: start: 20230511, end: 20230531
  2. FRUQUINTINIB [Suspect]
     Active Substance: FRUQUINTINIB
     Dosage: 4 MILLIGRAM, QD
     Route: 048
     Dates: start: 20231212, end: 20240101
  3. TIPIRACIL HYDROCHLORIDE\TRIFLURIDINE [Concomitant]
     Active Substance: TIPIRACIL HYDROCHLORIDE\TRIFLURIDINE
     Indication: Rectal cancer stage IV
     Dosage: 15 MILLIGRAM, BID
     Route: 048
     Dates: start: 20230511, end: 20230515
  4. TIPIRACIL HYDROCHLORIDE\TRIFLURIDINE [Concomitant]
     Active Substance: TIPIRACIL HYDROCHLORIDE\TRIFLURIDINE
     Dosage: 40 MILLIGRAM, BID
     Route: 048
     Dates: start: 20230511, end: 20230515
  5. TIPIRACIL HYDROCHLORIDE\TRIFLURIDINE [Concomitant]
     Active Substance: TIPIRACIL HYDROCHLORIDE\TRIFLURIDINE
     Dosage: 15 MILLIGRAM, BID
     Route: 048
     Dates: start: 20231212, end: 20231216
  6. TIPIRACIL HYDROCHLORIDE\TRIFLURIDINE [Concomitant]
     Active Substance: TIPIRACIL HYDROCHLORIDE\TRIFLURIDINE
     Dosage: 40 MILLIGRAM, BID
     Route: 048
     Dates: start: 20231212, end: 20231216
  7. TIPIRACIL HYDROCHLORIDE\TRIFLURIDINE [Concomitant]
     Active Substance: TIPIRACIL HYDROCHLORIDE\TRIFLURIDINE
     Dosage: 15 MILLIGRAM, BID
     Route: 048
     Dates: start: 20231226, end: 20231230
  8. TIPIRACIL HYDROCHLORIDE\TRIFLURIDINE [Concomitant]
     Active Substance: TIPIRACIL HYDROCHLORIDE\TRIFLURIDINE
     Dosage: 40 MILLIGRAM, BID
     Route: 048
     Dates: start: 20231226, end: 20231230

REACTIONS (2)
  - Myelosuppression [Unknown]
  - Neutropenia [Not Recovered/Not Resolved]

NARRATIVE: CASE EVENT DATE: 20230706
